FAERS Safety Report 5144507-0 (Version None)
Quarter: 2006Q4

REPORT INFORMATION
  Report Type: 
  Country: None (occurrence: None)
  Receive Date: 20061031
  Receipt Date: 20061023
  Transmission Date: 20070319
  Serious: Yes (Hospitalization)
  Sender: FDA-Public Use
  Company Number: GBWYE320424OCT06

PATIENT
  Age: 16 Year
  Sex: Female

DRUGS (1)
  1. TYGACIL [Suspect]
     Indication: MYCOBACTERIAL INFECTION
     Dosage: 25 MG 1X PER 1 DAY

REACTIONS (2)
  - CHEST PAIN [None]
  - MUSCLE SPASMS [None]
